FAERS Safety Report 15555593 (Version 3)
Quarter: 2019Q3

REPORT INFORMATION
  Report Type: Spontaneous
  Country: US (occurrence: US)
  Receive Date: 20181026
  Receipt Date: 20190930
  Transmission Date: 20191004
  Serious: Yes (Hospitalization, Other)
  Sender: FDA-Public Use
  Company Number: US-PFIZER INC-2018428979

PATIENT
  Age: 64 Year
  Sex: Male

DRUGS (1)
  1. TIKOSYN [Suspect]
     Active Substance: DOFETILIDE
     Dosage: 250 UG, 2X/DAY

REACTIONS (2)
  - Cardiac disorder [Unknown]
  - Arrhythmia [Unknown]
